FAERS Safety Report 25962845 (Version 1)
Quarter: 2025Q4

REPORT INFORMATION
  Report Type: Spontaneous
  Country: GB (occurrence: GB)
  Receive Date: 20251027
  Receipt Date: 20251027
  Transmission Date: 20260118
  Serious: Yes (Other)
  Sender: TEVA
  Company Number: GB-MHRA-TPP15879842C1078184YC1760609118368

PATIENT
  Age: 79 Year
  Sex: Female
  Weight: 86 kg

DRUGS (18)
  1. LEVOFLOXACIN [Suspect]
     Active Substance: LEVOFLOXACIN
     Indication: Product used for unknown indication
     Dosage: TWICE DAILY
     Route: 048
     Dates: start: 20250902, end: 20250907
  2. LANSOPRAZOLE [Concomitant]
     Active Substance: LANSOPRAZOLE
     Indication: Ill-defined disorder
     Dosage: MORNING
     Dates: start: 20250114
  3. EDOXABAN [Concomitant]
     Active Substance: EDOXABAN
     Indication: Ill-defined disorder
     Dates: start: 20250114
  4. PREDNISOLONE [Concomitant]
     Active Substance: PREDNISOLONE
     Indication: Ill-defined disorder
     Dosage: TAKE 6 DAILY FOR 5 DAYS THEN REDUCE TO 3 DAILY ...
     Dates: start: 20251009
  5. ZOPICLONE [Concomitant]
     Active Substance: ZOPICLONE
     Indication: Ill-defined disorder
     Dosage: TAKE ONE EVERY OTHER NIGHT IF NEEDED FOR SLEEP ...
     Dates: start: 20250808
  6. CLARITHROMYCIN [Concomitant]
     Active Substance: CLARITHROMYCIN
     Indication: Ill-defined disorder
     Dosage: TO TREAT INFECTION, STOP ATORVASTATIN WHILST TAKING
     Dates: start: 20251009
  7. FILGRASTIM [Concomitant]
     Active Substance: FILGRASTIM
     Indication: Ill-defined disorder
     Dates: start: 20250924
  8. SENNA [Concomitant]
     Active Substance: SENNOSIDES
     Indication: Ill-defined disorder
     Dosage: TAKE 1 OR 2 AT NIGHT
     Dates: start: 20250905
  9. FOLIC ACID [Concomitant]
     Active Substance: FOLIC ACID
     Indication: Ill-defined disorder
     Dates: start: 20250905
  10. FUROSEMIDE [Concomitant]
     Active Substance: FUROSEMIDE
     Indication: Ill-defined disorder
     Dosage: MORNING
     Dates: start: 20251016
  11. GABAPENTIN [Concomitant]
     Active Substance: GABAPENTIN
     Indication: Ill-defined disorder
     Dosage: TIME INTERVAL: 0.33333333 DAYS: AND CAN TAKE AN ADDITIONAL...
     Dates: start: 20250725, end: 20250824
  12. QUININE SULFATE [Concomitant]
     Active Substance: QUININE SULFATE
     Indication: Ill-defined disorder
     Dosage: AT NIGHT
     Dates: start: 20250114
  13. ATORVASTATIN [Concomitant]
     Active Substance: ATORVASTATIN
     Indication: Ill-defined disorder
     Dates: start: 20250114
  14. TRELEGY ELLIPTA [Concomitant]
     Active Substance: FLUTICASONE FUROATE\UMECLIDINIUM BROMIDE\VILANTEROL TRIFENATATE
     Indication: Ill-defined disorder
     Dosage: INHALE
     Dates: start: 20250114
  15. ALBUTEROL [Concomitant]
     Active Substance: ALBUTEROL
     Indication: Ill-defined disorder
     Dosage: INHALE AS NEEDED
     Dates: start: 20251009
  16. EASYHALER [Concomitant]
     Indication: Ill-defined disorder
     Dosage: INHALE AS NEEDED
     Dates: start: 20250129
  17. LACTULOSE [Concomitant]
     Active Substance: LACTULOSE
     Indication: Ill-defined disorder
     Dosage: 2 X 5ML. SPOONS, THREE TIMES A DAY
     Dates: start: 20250114
  18. ACETAMINOPHEN [Concomitant]
     Active Substance: ACETAMINOPHEN
     Indication: Ill-defined disorder
     Dosage: TWO TO BE TAKEN EVERY 4-6 HOURS UP TO FOUR TIME...
     Dates: start: 20250114

REACTIONS (2)
  - Dermatitis bullous [Recovered/Resolved]
  - Lip blister [Unknown]
